FAERS Safety Report 16387448 (Version 1)
Quarter: 2019Q2

REPORT INFORMATION
  Report Type: Spontaneous
  Country: BR (occurrence: BR)
  Receive Date: 20190604
  Receipt Date: 20190604
  Transmission Date: 20190711
  Serious: Yes (Other)
  Sender: FDA-Public Use
  Company Number: BR-ASTRAZENECA-2019SE81643

PATIENT
  Age: 19971 Day
  Sex: Female
  Weight: 74 kg

DRUGS (2)
  1. FASLODEX [Suspect]
     Active Substance: FULVESTRANT
     Indication: BREAST CANCER
     Dosage: 5 ML IN LEFT BUTOX
     Route: 030
     Dates: start: 201803
  2. TRASTUZUMAB. [Concomitant]
     Active Substance: TRASTUZUMAB
     Dates: start: 201803

REACTIONS (3)
  - Cough [Recovered/Resolved]
  - Erythema [Recovered/Resolved]
  - Hypertension [Recovered/Resolved]

NARRATIVE: CASE EVENT DATE: 20180912
